FAERS Safety Report 4620092-4 (Version None)
Quarter: 2005Q1

REPORT INFORMATION
  Report Type: 
  Country: None (occurrence: None)
  Receive Date: 20050328
  Receipt Date: 20041117
  Transmission Date: 20050727
  Serious: Yes (Death, Other)
  Sender: FDA-Public Use
  Company Number: JP-BRISTOL-MYERS SQUIBB COMPANY-12768768

PATIENT
  Age: 72 Year
  Sex: Male

DRUGS (5)
  1. BRIPLATIN [Suspect]
     Indication: PLEURAL MESOTHELIOMA MALIGNANT
     Route: 048
  2. ENDOXAN [Suspect]
     Indication: PLEURAL MESOTHELIOMA MALIGNANT
  3. DOXORUBICIN HCL [Suspect]
     Indication: PLEURAL MESOTHELIOMA MALIGNANT
     Route: 048
  4. ADRIACIN [Suspect]
     Indication: PLEURAL MESOTHELIOMA MALIGNANT
  5. RADIOTHERAPY [Concomitant]
     Indication: PLEURAL MESOTHELIOMA MALIGNANT
     Dosage: 50-60 GY

REACTIONS (4)
  - ANOREXIA [None]
  - ASTHENIA [None]
  - EMPYEMA [None]
  - PNEUMONIA [None]
